FAERS Safety Report 6803306-1 (Version None)
Quarter: 2010Q2

REPORT INFORMATION
  Report Type: 
  Country: None (occurrence: None)
  Receive Date: 20100628
  Receipt Date: 20100616
  Transmission Date: 20101027
  Serious: Yes (Life-Threatening)
  Sender: FDA-Public Use
  Company Number: IT-PFIZER INC-2010075197

PATIENT
  Age: 70 Year
  Sex: Male

DRUGS (1)
  1. FARMORUBICINA [Suspect]
     Indication: BLADDER CANCER
     Dosage: 50 MG, MONTHLY
     Route: 043
     Dates: start: 20100315, end: 20100415

REACTIONS (4)
  - CONJUNCTIVAL HYPERAEMIA [None]
  - ERYTHEMA [None]
  - HYPOTENSION [None]
  - TREMOR [None]
